FAERS Safety Report 19942249 (Version 5)
Quarter: 2022Q4

REPORT INFORMATION
  Report Type: Report from Study
  Country: SE (occurrence: SE)
  Receive Date: 20211012
  Receipt Date: 20221213
  Transmission Date: 20230113
  Serious: Yes (Hospitalization)
  Sender: FDA-Public Use
  Company Number: SE-ABBVIE-21K-150-4112684-00

PATIENT
  Age: 61 Year
  Sex: Male

DRUGS (6)
  1. CARBIDOPA\LEVODOPA [Suspect]
     Active Substance: CARBIDOPA\LEVODOPA
     Indication: Parkinson^s disease
     Dosage: MORNING DOSE INCREASED FROM 8ML TO 8.5ML, CONTINUOUS DOSE INCREASED FROM 4.2 ML/H TO 4.4 ML/H.
     Route: 050
     Dates: start: 20211010
  2. CARBIDOPA\LEVODOPA [Suspect]
     Active Substance: CARBIDOPA\LEVODOPA
     Dosage: CONTINUOUS DOSE INCREASED FROM 5.2 ML/H TO 5.4 ML/H
     Route: 050
     Dates: start: 20221209
  3. CARBIDOPA\LEVODOPA [Suspect]
     Active Substance: CARBIDOPA\LEVODOPA
     Dosage: CURRENT DOSAGE: MORNING DOSE: 9ML, CONTINUOUS DOSE: 4.5ML/H, EXTRA DOSE: 1.5ML.
     Route: 050
     Dates: start: 20211022
  4. CARBIDOPA\LEVODOPA [Suspect]
     Active Substance: CARBIDOPA\LEVODOPA
     Route: 050
     Dates: start: 20211008
  5. CARBIDOPA\LEVODOPA [Suspect]
     Active Substance: CARBIDOPA\LEVODOPA
     Dosage: MD INCREASED FROM 8ML TO 8.5ML, CONTINUOUS DOSE INCREASED FROM 4.2 ML/H TO 4.4 ML/H.
     Route: 050
     Dates: start: 20211010
  6. CARBIDOPA\LEVODOPA [Suspect]
     Active Substance: CARBIDOPA\LEVODOPA
     Dosage: THERAPY DURATION: REMAINS AT 16H
     Route: 050
     Dates: start: 20210920, end: 20210928

REACTIONS (14)
  - Musculoskeletal stiffness [Unknown]
  - Musculoskeletal stiffness [Unknown]
  - Tremor [Recovering/Resolving]
  - Dystonia [Recovering/Resolving]
  - On and off phenomenon [Recovering/Resolving]
  - Muscle spasms [Not Recovered/Not Resolved]
  - Dystonia [Not Recovered/Not Resolved]
  - Mental impairment [Unknown]
  - Therapeutic product effect incomplete [Unknown]
  - Constipation [Unknown]
  - Freezing phenomenon [Recovering/Resolving]
  - Malaise [Unknown]
  - Device dislocation [Unknown]
  - Muscle spasms [Recovering/Resolving]

NARRATIVE: CASE EVENT DATE: 20210928
